FAERS Safety Report 17308019 (Version 1)
Quarter: 2020Q1

REPORT INFORMATION
  Report Type: Spontaneous
  Country: US (occurrence: US)
  Receive Date: 20200107
  Receipt Date: 20200107
  Transmission Date: 20200409
  Serious: Yes (Hospitalization)
  Sender: FDA-Public Use
  Company Number: None

PATIENT
  Age: 72 Year
  Sex: Male

DRUGS (1)
  1. PREDNISONE 5MG TAB [Suspect]
     Active Substance: PREDNISONE
     Route: 048
     Dates: start: 20191030

REACTIONS (6)
  - Neck injury [None]
  - Therapy cessation [None]
  - Insurance issue [None]
  - Dehydration [None]
  - Condition aggravated [None]
  - Weight increased [None]

NARRATIVE: CASE EVENT DATE: 20191127
